FAERS Safety Report 13825982 (Version 2)
Quarter: 2018Q3

REPORT INFORMATION
  Report Type: Spontaneous
  Country: US (occurrence: US)
  Receive Date: 20170802
  Receipt Date: 20180921
  Transmission Date: 20181010
  Serious: No
  Sender: FDA-Public Use
  Company Number: US-IGSA-GTI005123

PATIENT
  Age: 52 Year
  Sex: Male

DRUGS (4)
  1. GAMUNEX?C [Suspect]
     Active Substance: HUMAN IMMUNOGLOBULIN G
     Indication: POLYNEUROPATHY
     Dosage: 70 G, Q.M.T.
     Route: 042
     Dates: start: 20161226, end: 20161226
  2. GAMUNEX?C [Suspect]
     Active Substance: HUMAN IMMUNOGLOBULIN G
     Dosage: 70 G, Q.M.T.
     Route: 042
     Dates: start: 20161001, end: 20161001
  3. PREDNISONE. [Concomitant]
     Active Substance: PREDNISONE
     Dosage: 10 MG, UNK
     Route: 048
     Dates: start: 20161001, end: 20161001
  4. PREDNISONE. [Concomitant]
     Active Substance: PREDNISONE
     Indication: PREMEDICATION
     Dosage: 10 MG, UNK
     Route: 048
     Dates: start: 20161226, end: 20161226

REACTIONS (5)
  - Lip dry [Recovering/Resolving]
  - Hypersensitivity [Recovering/Resolving]
  - Thrombophlebitis superficial [Recovering/Resolving]
  - Injection site reaction [Recovering/Resolving]
  - Rash generalised [Recovering/Resolving]

NARRATIVE: CASE EVENT DATE: 20161003
